FAERS Safety Report 6769940-2 (Version None)
Quarter: 2010Q2

REPORT INFORMATION
  Report Type: 
  Country: None (occurrence: None)
  Receive Date: 20100615
  Receipt Date: 20100610
  Transmission Date: 20101027
  Serious: Yes (Death)
  Sender: FDA-Public Use
  Company Number: A0864714A

PATIENT
  Age: 45 Year
  Sex: Male

DRUGS (1)
  1. PROMACTA [Suspect]
     Indication: LYMPHOMA
     Dosage: 75MG PER DAY
     Dates: start: 20090701, end: 20091101

REACTIONS (3)
  - DRUG INEFFECTIVE [None]
  - LYMPHOMA [None]
  - PNEUMONIA [None]
